FAERS Safety Report 4595847-5 (Version None)
Quarter: 2005Q1

REPORT INFORMATION
  Report Type: 
  Country: None (occurrence: None)
  Receive Date: 20050224
  Receipt Date: 20050224
  Transmission Date: 20050727
  Serious: Yes (Hospitalization)
  Sender: FDA-Public Use
  Company Number: None

PATIENT
  Sex: Male

DRUGS (13)
  1. NAPROXEN [Suspect]
     Indication: ANALGESIC EFFECT
     Dosage: 500 MG BID  ORAL
     Route: 048
  2. SODIUM BICARBONATE [Concomitant]
  3. NEPHROCAPS [Concomitant]
  4. DOCUSATE [Concomitant]
  5. COLCHICINE [Concomitant]
  6. METOPROLOL [Concomitant]
  7. ASPIRIN [Concomitant]
  8. LIDOCAINE [Concomitant]
  9. OXYCODONE AND ACETAMINOPHEN [Concomitant]
  10. LACTULOSE [Concomitant]
  11. MINOXIDIL [Concomitant]
  12. SEVELAMER [Concomitant]
  13. LORATADINE [Concomitant]

REACTIONS (1)
  - GASTROINTESTINAL HAEMORRHAGE [None]
